FAERS Safety Report 7385034-X (Version None)
Quarter: 2011Q1

REPORT INFORMATION
  Report Type: 
  Country: None (occurrence: None)
  Receive Date: 20110330
  Receipt Date: 20110323
  Transmission Date: 20110831
  Serious: Yes (Hospitalization)
  Sender: FDA-Public Use
  Company Number: FR-PFIZER INC-2011064129

PATIENT
  Age: 20 Year
  Sex: Female
  Weight: 89 kg

DRUGS (9)
  1. DALACINE [Suspect]
     Indication: STAPHYLOCOCCAL INFECTION
     Dosage: 900 MG, 3X/DAY
     Route: 042
     Dates: start: 20110126, end: 20110209
  2. PEFLACINE [Concomitant]
     Dosage: UNK
     Route: 048
  3. ESTREVA [Concomitant]
  4. ACUPAN [Concomitant]
  5. RIFAMPICIN [Concomitant]
     Indication: STAPHYLOCOCCAL INFECTION
     Dosage: 600 MG, 3X/DAY
     Route: 042
     Dates: start: 20110112, end: 20110128
  6. VANCOMYCIN [Concomitant]
     Indication: STAPHYLOCOCCAL INFECTION
     Dosage: 3 G PER DAY
     Route: 042
     Dates: start: 20110112, end: 20110125
  7. UTROGESTAN [Concomitant]
  8. ACETAMINOPHEN [Concomitant]
  9. PEFLACINE [Concomitant]
     Indication: STAPHYLOCOCCAL INFECTION
     Dosage: 400 MG, 3X/DAY
     Route: 042
     Dates: start: 20110112

REACTIONS (3)
  - TOXIC SKIN ERUPTION [None]
  - ARTHRALGIA [None]
  - PRURITUS [None]
